FAERS Safety Report 19646879 (Version 2)
Quarter: 2025Q1

REPORT INFORMATION
  Report Type: Report from Study
  Country: GB (occurrence: GB)
  Receive Date: 20210802
  Receipt Date: 20250206
  Transmission Date: 20250408
  Serious: Yes (Other)
  Sender: ROCHE
  Company Number: GB-ROCHE-2875438

PATIENT

DRUGS (1)
  1. BEVACIZUMAB [Suspect]
     Active Substance: BEVACIZUMAB
     Indication: Sclerectomy
     Route: 057

REACTIONS (8)
  - Off label use [Unknown]
  - Hypotony of eye [Unknown]
  - Hypotony maculopathy [Unknown]
  - Choroidal detachment [Unknown]
  - Choroidal haemorrhage [Unknown]
  - Anterior chamber reformation [Unknown]
  - Retinopathy [Unknown]
  - Choroidal effusion [Unknown]
